FAERS Safety Report 22258916 (Version 2)
Quarter: 2023Q2

REPORT INFORMATION
  Report Type: Spontaneous
  Country: CA (occurrence: CA)
  Receive Date: 20230427
  Receipt Date: 20230427
  Transmission Date: 20230722
  Serious: Yes (Death, Other)
  Sender: FDA-Public Use
  Company Number: CA-PFIZER INC-202300164629

PATIENT

DRUGS (2)
  1. TRIAZOLAM [Interacting]
     Active Substance: TRIAZOLAM
     Dosage: 1.07 MG, IN STOMACH
     Route: 048
  2. CARBON MONOXIDE [Suspect]
     Active Substance: CARBON MONOXIDE
     Dosage: UNK

REACTIONS (3)
  - Completed suicide [Fatal]
  - Alcohol interaction [Fatal]
  - Overdose [Fatal]
